FAERS Safety Report 6626642-0 (Version None)
Quarter: 2010Q1

REPORT INFORMATION
  Report Type: 
  Country: None (occurrence: None)
  Receive Date: 20100310
  Receipt Date: 20100302
  Transmission Date: 20100710
  Serious: Yes (Death, Other)
  Sender: FDA-Public Use
  Company Number: US-AMGEN-QUU396234

PATIENT
  Sex: Male

DRUGS (4)
  1. NEULASTA [Suspect]
     Indication: MYELODYSPLASTIC SYNDROME
  2. VITAMINS [Concomitant]
  3. HERBAL SUPPLEMENT [Concomitant]
  4. FISH OIL [Concomitant]

REACTIONS (15)
  - ASTHENIA [None]
  - BONE PAIN [None]
  - COUGH [None]
  - CYANOSIS [None]
  - DEATH [None]
  - DIZZINESS [None]
  - FALL [None]
  - FEELING ABNORMAL [None]
  - HALLUCINATION, VISUAL [None]
  - HEADACHE [None]
  - INSOMNIA [None]
  - NASOPHARYNGITIS [None]
  - NAUSEA [None]
  - PLATELET COUNT DECREASED [None]
  - PYREXIA [None]
